FAERS Safety Report 9196843 (Version 1)
Quarter: 2013Q1

REPORT INFORMATION
  Report Type: Spontaneous
  Country: VE (occurrence: VE)
  Receive Date: 20130328
  Receipt Date: 20130328
  Transmission Date: 20140127
  Serious: Yes (Hospitalization, Other)
  Sender: FDA-Public Use
  Company Number: PHHY2013VE029899

PATIENT
  Age: 87 Year
  Sex: Male

DRUGS (2)
  1. FORADIL [Suspect]
     Indication: DYSPNOEA
     Dosage: 12UG EVERY 12 HOURS
  2. MIFLONIDE [Suspect]
     Indication: DYSPNOEA
     Dosage: 200UG EVERY 12 HOURS

REACTIONS (4)
  - Dyspnoea [Recovered/Resolved]
  - Left ventricular failure [Recovered/Resolved]
  - Essential hypertension [Recovered/Resolved]
  - Oedema peripheral [Recovered/Resolved]
